FAERS Safety Report 13395689 (Version 1)
Quarter: 2017Q2

REPORT INFORMATION
  Report Type: Spontaneous
  Country: US (occurrence: US)
  Receive Date: 20170401
  Receipt Date: 20170401
  Transmission Date: 20170830
  Serious: No
  Sender: FDA-Public Use
  Company Number: None

PATIENT
  Age: 65 Year
  Sex: Female
  Weight: 72 kg

DRUGS (9)
  1. VITAMIN D [Concomitant]
     Active Substance: CHOLECALCIFEROL
  2. METFORMIN [Concomitant]
     Active Substance: METFORMIN HYDROCHLORIDE
  3. SPIROLACTONE [Concomitant]
     Active Substance: SPIRONOLACTONE
  4. TRAZODONE [Suspect]
     Active Substance: TRAZODONE HYDROCHLORIDE
     Indication: DIABETES MELLITUS
     Dosage: ?          QUANTITY:1 TABLET(S);?
     Route: 048
     Dates: start: 20170212, end: 20170330
  5. GERITOL COMPLETE [Concomitant]
  6. BAYER 80MG [Concomitant]
  7. COQ10 [Concomitant]
     Active Substance: UBIDECARENONE
  8. LESCOL XL [Concomitant]
     Active Substance: FLUVASTATIN SODIUM
  9. FOLIC ACID. [Concomitant]
     Active Substance: FOLIC ACID

REACTIONS (5)
  - Somnolence [None]
  - Nightmare [None]
  - Abdominal pain upper [None]
  - Nausea [None]
  - Product size issue [None]

NARRATIVE: CASE EVENT DATE: 20170212
